FAERS Safety Report 17670967 (Version 1)
Quarter: 2020Q2

REPORT INFORMATION
  Report Type: Spontaneous
  Country: FR (occurrence: FR)
  Receive Date: 20200415
  Receipt Date: 20200415
  Transmission Date: 20200713
  Serious: Yes (Hospitalization)
  Sender: FDA-Public Use
  Company Number: FR-MYLANLABS-2020M1037527

PATIENT
  Age: 77 Year
  Sex: Female
  Weight: 67 kg

DRUGS (6)
  1. SIMVASTATIN. [Suspect]
     Active Substance: SIMVASTATIN
     Indication: DYSLIPIDAEMIA
     Dosage: 10 MILLIGRAM, QD
     Route: 048
     Dates: end: 20200202
  2. ACTONEL [Suspect]
     Active Substance: RISEDRONATE SODIUM
     Indication: PREMATURE MENOPAUSE
     Dosage: 2 DOSAGE FORM, MONTHLY
     Route: 048
     Dates: end: 20200130
  3. PANTOPRAZOLE [Suspect]
     Active Substance: PANTOPRAZOLE
     Indication: PRODUCT USED FOR UNKNOWN INDICATION
     Dosage: 20 MILLIGRAM, QD
     Route: 048
     Dates: end: 20200202
  4. IMETH                              /00113801/ [Suspect]
     Active Substance: METHOTREXATE
     Indication: RHEUMATOID ARTHRITIS
     Dosage: 12.5 MILLIGRAM, QW
     Route: 048
     Dates: end: 20200129
  5. SOLIAN [Suspect]
     Active Substance: AMISULPRIDE
     Indication: DELUSIONAL DISORDER, UNSPECIFIED TYPE
     Dosage: 1 DOSAGE FORM, QD
     Route: 048
     Dates: end: 20200202
  6. SPECIAFOLDINE [Suspect]
     Active Substance: FOLIC ACID
     Indication: VITAMIN SUPPLEMENTATION
     Dosage: 12 DOSAGE FORM, QW
     Route: 048
     Dates: end: 20200202

REACTIONS (2)
  - Encephalopathy [Recovering/Resolving]
  - Confusional state [Recovering/Resolving]

NARRATIVE: CASE EVENT DATE: 202002
